FAERS Safety Report 8071377-3 (Version None)
Quarter: 2012Q1

REPORT INFORMATION
  Report Type: 
  Country: None (occurrence: None)
  Receive Date: 20120119
  Receipt Date: 20120104
  Transmission Date: 20120608
  Serious: Yes (Hospitalization)
  Sender: FDA-Public Use
  Company Number: B0772771A

PATIENT
  Sex: Male

DRUGS (6)
  1. INT./LONG-ACTING INSULIN [Concomitant]
  2. TARKA [Concomitant]
  3. CIPROFLOXACIN [Suspect]
     Indication: OSTEITIS
     Dosage: UNK/UNK/ORAL
     Route: 048
     Dates: start: 20111021, end: 20111117
  4. DIGOXIN [Concomitant]
  5. LATANOPROST [Concomitant]
  6. CEFTAZIDIME SODIUM [Suspect]
     Indication: OSTEITIS
     Dosage: UNK/UNK/INTRAVENOUS
     Route: 042
     Dates: start: 20111021, end: 20111024

REACTIONS (1)
  - TOXIC SKIN ERUPTION [None]
